FAERS Safety Report 6516949-X (Version None)
Quarter: 2009Q4

REPORT INFORMATION
  Report Type: 
  Country: None (occurrence: None)
  Receive Date: 20091223
  Receipt Date: 20091212
  Transmission Date: 20100525
  Serious: Yes (Other)
  Sender: FDA-Public Use
  Company Number: US-PFIZER INC-2009280558

PATIENT
  Sex: Male
  Weight: 81.633 kg

DRUGS (2)
  1. GEODON [Suspect]
     Indication: PANIC ATTACK
     Dosage: 40 MG, 1X/DAY
     Route: 048
     Dates: start: 20080101
  2. GEODON [Suspect]
     Dosage: 20 MG, 2X/DAY
     Route: 048

REACTIONS (21)
  - ABDOMINAL DISCOMFORT [None]
  - AGITATION [None]
  - ANGER [None]
  - BOWEL MOVEMENT IRREGULARITY [None]
  - DEAFNESS UNILATERAL [None]
  - DELUSION [None]
  - DRUG INEFFECTIVE [None]
  - DRY EYE [None]
  - FATIGUE [None]
  - FEELING ABNORMAL [None]
  - FEELING OF BODY TEMPERATURE CHANGE [None]
  - FREQUENT BOWEL MOVEMENTS [None]
  - HEART RATE INCREASED [None]
  - HYPERHIDROSIS [None]
  - MEDICATION ERROR [None]
  - POLLAKIURIA [None]
  - SINUSITIS [None]
  - SOMNOLENCE [None]
  - TREMOR [None]
  - VISION BLURRED [None]
  - WEIGHT INCREASED [None]
